FAERS Safety Report 4872902-3 (Version None)
Quarter: 2006Q1

REPORT INFORMATION
  Report Type: 
  Country: None (occurrence: None)
  Receive Date: 20060105
  Receipt Date: 20041209
  Transmission Date: 20060701
  Serious: Yes (Disabling)
  Sender: FDA-Public Use
  Company Number: US-BRISTOL-MYERS SQUIBB COMPANY-12803128

PATIENT
  Age: 71 Year
  Sex: Male
  Weight: 77 kg

DRUGS (10)
  1. SERZONE [Suspect]
     Indication: DEPRESSION
     Dosage: RECEIVED THERAPY FOR ^SIX TO SEVEN YEARS.^  INITIATED IN ^1997 OR 1998.^
     Route: 048
  2. HYTRIN [Concomitant]
  3. MEVACOR [Concomitant]
  4. PRINIVIL [Concomitant]
  5. HYDROCHLOROTHIAZIDE [Concomitant]
  6. COZAAR [Concomitant]
  7. GLUCOTROL [Concomitant]
  8. ASPIRIN [Concomitant]
  9. DILTIAZEM HCL [Concomitant]
  10. DELACORT [Concomitant]

REACTIONS (4)
  - BLOOD PRESSURE INCREASED [None]
  - DECREASED ACTIVITY [None]
  - IMPAIRED DRIVING ABILITY [None]
  - MENTAL IMPAIRMENT [None]
